FAERS Safety Report 9179319 (Version 1)
Quarter: 2012Q4

REPORT INFORMATION
  Report Type: 
  Country: GB (occurrence: GB)
  Receive Date: 20121029
  Receipt Date: 20121029
  Transmission Date: 20130627
  Serious: Yes (Disabling)
  Sender: FDA-Public Use
  Company Number: GB-ROCHE-1147291

PATIENT
  Age: 35 Year
  Sex: Female

DRUGS (20)
  1. RITUXIMAB [Suspect]
     Indication: DIFFUSE LARGE B-CELL LYMPHOMA
     Route: 042
     Dates: start: 20120410
  2. CYCLOPHOSPHAMIDE [Suspect]
     Indication: DIFFUSE LARGE B-CELL LYMPHOMA
     Route: 042
     Dates: start: 20120410
  3. DOXORUBICIN [Suspect]
     Indication: DIFFUSE LARGE B-CELL LYMPHOMA
     Route: 042
     Dates: start: 20120410
  4. PREDNISOLONE [Suspect]
     Indication: DIFFUSE LARGE B-CELL LYMPHOMA
     Route: 048
     Dates: start: 20120410
  5. VINCRISTINE SULFATE [Suspect]
     Indication: DIFFUSE LARGE B-CELL LYMPHOMA
     Route: 042
     Dates: start: 20120410
  6. ACETAMINOPHEN [Concomitant]
     Indication: PREMEDICATION
     Route: 065
     Dates: start: 20120410
  7. BENZYDAMINE HYDROCHLORIDE [Concomitant]
     Indication: MUCOSAL INFLAMMATION
     Route: 065
     Dates: start: 20120427
  8. CODEINE [Concomitant]
     Indication: ORAL PAIN
     Route: 065
     Dates: start: 20120407
  9. COLACE [Concomitant]
     Indication: CONSTIPATION
  10. LIDOCAINE [Concomitant]
     Indication: PRODUCT USED FOR UNKNOWN INDICATION
     Route: 065
     Dates: start: 20120608
  11. MORPHINE SULFATE [Concomitant]
     Indication: ABDOMINAL DISCOMFORT
     Route: 065
     Dates: start: 20120320
  12. NAPROXEN [Concomitant]
     Indication: BACK PAIN
  13. PANTOPRAZOLE [Concomitant]
     Indication: DYSPEPSIA
  14. POLYETHYLENE GLYCOL 3350, NF POWDER [Concomitant]
     Indication: HAEMORRHOIDS
     Route: 065
     Dates: start: 20120608
  15. RANITIDINE [Concomitant]
     Indication: PREMEDICATION
     Route: 065
     Dates: start: 20120410
  16. SENOKOT [Concomitant]
     Indication: CONSTIPATION
  17. TRAMADOL HYDROCHLORIDE [Concomitant]
     Indication: ABDOMINAL PAIN
  18. VALACICLOVIR HYDROCHLORIDE [Concomitant]
     Indication: PROPHYLAXIS
     Route: 065
     Dates: start: 20120307
  19. YAZ [Concomitant]
     Indication: CONTRACEPTION
  20. DIPHENHYDRAMINE HCL [Concomitant]
     Indication: PREMEDICATION
     Route: 065
     Dates: start: 20120410

REACTIONS (10)
  - Oral herpes [Recovering/Resolving]
  - Abdominal pain [Unknown]
  - Acromegaly [Unknown]
  - Constipation [Unknown]
  - Fatigue [Unknown]
  - Dyspepsia [Unknown]
  - Insomnia [Unknown]
  - Back pain [Unknown]
  - Night sweats [Unknown]
  - Pituitary tumour benign [Unknown]
